FAERS Safety Report 21979681 (Version 1)
Quarter: 2023Q1

REPORT INFORMATION
  Report Type: Report from Study
  Country: US (occurrence: US)
  Receive Date: 20230210
  Receipt Date: 20230210
  Transmission Date: 20230417
  Serious: Yes (Other)
  Sender: FDA-Public Use
  Company Number: US-ABBVIE-4301576

PATIENT
  Sex: Female

DRUGS (8)
  1. SKYRIZI [Suspect]
     Active Substance: RISANKIZUMAB-RZAA
     Indication: Psoriasis
     Route: 058
  2. TRAZODONE HC [Concomitant]
     Indication: Product used for unknown indication
  3. VITAMIN E [Concomitant]
     Active Substance: .ALPHA.-TOCOPHEROL
     Indication: Product used for unknown indication
  4. BACLOFEN [Concomitant]
     Active Substance: BACLOFEN
     Indication: Product used for unknown indication
  5. SUPER B/C CAP [Concomitant]
     Indication: Product used for unknown indication
  6. ESOMEPRAZOLE CPD [Concomitant]
     Indication: Product used for unknown indication
  7. FLUOXETINE H [Concomitant]
     Indication: Product used for unknown indication
  8. BIOTIN [Concomitant]
     Active Substance: BIOTIN
     Indication: Product used for unknown indication

REACTIONS (5)
  - Knee arthroplasty [Unknown]
  - Skin mass [Unknown]
  - Depression [Unknown]
  - Shoulder arthroplasty [Unknown]
  - Spinal operation [Unknown]
